FAERS Safety Report 9649499 (Version 1)
Quarter: 2013Q4

REPORT INFORMATION
  Report Type: Spontaneous
  Country: AU (occurrence: AU)
  Receive Date: 20131028
  Receipt Date: 20131028
  Transmission Date: 20140711
  Serious: Yes (Other)
  Sender: FDA-Public Use
  Company Number: PHHY2013AU120006

PATIENT
  Sex: Male

DRUGS (2)
  1. DICLOFENAC [Suspect]
  2. IBUPROFEN [Concomitant]

REACTIONS (4)
  - Dysphonia [Unknown]
  - Pruritus [Unknown]
  - Rash [Unknown]
  - Swelling face [Unknown]
